FAERS Safety Report 5370280-7 (Version None)
Quarter: 2007Q2

REPORT INFORMATION
  Report Type: 
  Country: None (occurrence: None)
  Receive Date: 20070625
  Receipt Date: 20070625
  Transmission Date: 20071010
  Serious: Yes (Disabling, Other)
  Sender: FDA-Public Use
  Company Number: None

PATIENT
  Age: 34 Year
  Sex: Female
  Weight: 66.9056 kg

DRUGS (1)
  1. TOPAMAX [Suspect]
     Indication: ANGLE CLOSURE GLAUCOMA
     Dosage: 25 MG QHS PO   50MG QHS PO
     Route: 048
     Dates: start: 20070116, end: 20070120

REACTIONS (2)
  - ANGLE CLOSURE GLAUCOMA [None]
  - BLINDNESS [None]
